FAERS Safety Report 9250498 (Version 1)
Quarter: 2013Q1

REPORT INFORMATION
  Report Type: Spontaneous
  Country: US (occurrence: None)
  Receive Date: 20130305
  Receipt Date: 20130305
  Transmission Date: 20140127
  Serious: Yes (Hospitalization, Other)
  Sender: FDA-Public Use
  Company Number: 163-21880-12-71227 (0)

PATIENT
  Age: 62 Year
  Sex: Male

DRUGS (7)
  1. REVLIMID [Suspect]
     Indication: PLASMA CELL MYELOMA
     Dosage: 10MG, 1 IN 1 D, PO
     Route: 048
     Dates: start: 20111202, end: 20120131
  2. OXYCONTIN (OXYCODONE HYDROCHLORIDE) [Concomitant]
  3. PERCOCET (OXYCOCET) [Concomitant]
  4. GABAPENTIN (GABAPENTIN) [Concomitant]
  5. SEPTRA DS (BACTRIM) [Concomitant]
  6. TEMAZEPAM (TEMAZEPAM) [Concomitant]
  7. LORAZEPAM (LORAZEPAM) [Concomitant]

REACTIONS (2)
  - Cholecystitis [None]
  - Full blood count decreased [None]
